FAERS Safety Report 11862845 (Version 1)
Quarter: 2015Q4

REPORT INFORMATION
  Report Type: Spontaneous
  Country: US (occurrence: None)
  Receive Date: 20151222
  Receipt Date: 20151222
  Transmission Date: 20160305
  Serious: No
  Sender: FDA-Public Use
  Company Number: None

PATIENT
  Age: 58 Year
  Sex: Male

DRUGS (2)
  1. HUMALOG [Concomitant]
     Active Substance: INSULIN LISPRO
  2. VANCOMYCIN [Suspect]
     Active Substance: VANCOMYCIN

REACTIONS (3)
  - Blood glucose increased [None]
  - Drug ineffective [None]
  - Drug dose omission [None]
